FAERS Safety Report 6730919-8 (Version None)
Quarter: 2010Q2

REPORT INFORMATION
  Report Type: 
  Country: None (occurrence: None)
  Receive Date: 20100518
  Receipt Date: 20100508
  Transmission Date: 20101027
  Serious: Yes (Hospitalization)
  Sender: FDA-Public Use
  Company Number: PHHY2010DE17661

PATIENT
  Sex: Female

DRUGS (1)
  1. EXTAVIA [Suspect]
     Indication: MULTIPLE SCLEROSIS
     Dosage: 250 UG/ML, QOD
     Route: 058
     Dates: start: 20090412

REACTIONS (10)
  - ARTHRITIS [None]
  - DRY SKIN [None]
  - EYELID OEDEMA [None]
  - FATIGUE [None]
  - GAIT DISTURBANCE [None]
  - KNEE OPERATION [None]
  - PAIN [None]
  - PRURITUS [None]
  - SEASONAL ALLERGY [None]
  - SKIN REACTION [None]
